FAERS Safety Report 21278640 (Version 8)
Quarter: 2022Q4

REPORT INFORMATION
  Report Type: Spontaneous
  Country: CA (occurrence: CA)
  Receive Date: 20220901
  Receipt Date: 20221212
  Transmission Date: 20230112
  Serious: Yes (Other)
  Sender: FDA-Public Use
  Company Number: CA-CELLTRION INC.-2021CA018822

PATIENT

DRUGS (25)
  1. INFLECTRA [Suspect]
     Active Substance: INFLIXIMAB-DYYB
     Indication: Crohn^s disease
     Dosage: 10 MG/KG, Q 0, 2, 6 WEEKS, THEN EVERY 4 WEEKS
     Route: 042
     Dates: start: 20211111, end: 20220511
  2. INFLECTRA [Suspect]
     Active Substance: INFLIXIMAB-DYYB
     Dosage: 10 MG/KG, Q 0, 2, 6 WEEKS, THEN EVERY 4 WEEKS
     Route: 042
     Dates: start: 20211125
  3. INFLECTRA [Suspect]
     Active Substance: INFLIXIMAB-DYYB
     Dosage: 10 MG/KG, Q 0, 2, 6 WEEKS, THEN EVERY 4 WEEKS
     Route: 042
     Dates: start: 20211221
  4. INFLECTRA [Suspect]
     Active Substance: INFLIXIMAB-DYYB
     Dosage: 800 MG
     Route: 042
     Dates: start: 20220118
  5. INFLECTRA [Suspect]
     Active Substance: INFLIXIMAB-DYYB
     Dosage: 10 MG/KG, Q 0, 2, 6 WEEKS, THEN EVERY 4 WEEKS
     Route: 042
     Dates: start: 20220413
  6. INFLECTRA [Suspect]
     Active Substance: INFLIXIMAB-DYYB
     Dosage: 10 MG/KG, Q 0, 2, 6 WEEKS, THEN EVERY 4 WEEKS
     Route: 042
     Dates: start: 20220511
  7. INFLECTRA [Suspect]
     Active Substance: INFLIXIMAB-DYYB
     Dosage: 10 MG/KG EVERY 2 WEEKS FOR 2 MONTHS
     Route: 042
     Dates: start: 20220527
  8. INFLECTRA [Suspect]
     Active Substance: INFLIXIMAB-DYYB
     Dosage: 10 MG/KG EVERY 2 WEEKS FOR 2 MONTHS
     Route: 042
     Dates: start: 20220527, end: 20221026
  9. INFLECTRA [Suspect]
     Active Substance: INFLIXIMAB-DYYB
     Dosage: 10 MG/KG EVERY 2 WEEKS FOR 2 MONTHS
     Route: 042
     Dates: start: 20220607
  10. INFLECTRA [Suspect]
     Active Substance: INFLIXIMAB-DYYB
     Dosage: 10 MG/KG EVERY 2 WEEKS FOR 2 MONTHS
     Route: 042
     Dates: start: 20220622
  11. INFLECTRA [Suspect]
     Active Substance: INFLIXIMAB-DYYB
     Dosage: 10 MG/KG EVERY 2 WEEKS FOR 2 MONTHS
     Route: 042
     Dates: start: 20220706
  12. INFLECTRA [Suspect]
     Active Substance: INFLIXIMAB-DYYB
     Dosage: 10 MG/KG EVERY 2 WEEKS FOR 2 MONTHS
     Route: 042
     Dates: start: 20220720
  13. INFLECTRA [Suspect]
     Active Substance: INFLIXIMAB-DYYB
     Dosage: 10 MG/KG EVERY 2 WEEKS FOR 2 MONTHS
     Route: 042
     Dates: start: 20220803
  14. INFLECTRA [Suspect]
     Active Substance: INFLIXIMAB-DYYB
     Dosage: 10 MG/KG, EVERY 2 WEEKS, FOR 2 MONTHS
     Route: 042
     Dates: start: 20220817
  15. INFLECTRA [Suspect]
     Active Substance: INFLIXIMAB-DYYB
     Dosage: 790 MG (SUPPOSED TO RECEIVE 10 MG/KG ROUND UP TO NEXT VIAL IF DOSE IS EQUAL OR GREATER THAN 50MG)
     Route: 042
     Dates: start: 20220831
  16. INFLECTRA [Suspect]
     Active Substance: INFLIXIMAB-DYYB
     Dosage: 10 MG/KG, EVERY 2 WEEKS, FOR 2 MONTHS
     Route: 042
     Dates: start: 20220914
  17. INFLECTRA [Suspect]
     Active Substance: INFLIXIMAB-DYYB
     Dosage: 10 MG/KG, EVERY 2 WEEKS, FOR 2 MONTHS
     Route: 042
     Dates: start: 20220928
  18. INFLECTRA [Suspect]
     Active Substance: INFLIXIMAB-DYYB
     Dosage: 10 MG/KG, EVERY 2 WEEKS, FOR 2 MONTHS
     Route: 042
     Dates: start: 20221012
  19. INFLECTRA [Suspect]
     Active Substance: INFLIXIMAB-DYYB
     Dosage: 10 MG/KG, EVERY 2 WEEKS, FOR 2 MONTHS
     Route: 042
     Dates: start: 20221026
  20. INFLECTRA [Suspect]
     Active Substance: INFLIXIMAB-DYYB
     Dosage: 10 MG/KG EVERY 4 WEEK
     Route: 042
     Dates: start: 20221121
  21. ENTYVIO [Concomitant]
     Active Substance: VEDOLIZUMAB
     Dosage: 1 DF
     Dates: start: 20211109
  22. ENTYVIO [Concomitant]
     Active Substance: VEDOLIZUMAB
     Dosage: 1 DF, DOSAGE NOT AVAILABLE
     Route: 065
  23. TOFACITINIB [Concomitant]
     Active Substance: TOFACITINIB
     Dosage: 1 DF
  24. TOFACITINIB [Concomitant]
     Active Substance: TOFACITINIB
     Dosage: 1 DF, UNK DOSE
  25. CHOLECALCIFEROL [Concomitant]
     Active Substance: CHOLECALCIFEROL
     Dosage: 10000 IU, WEEKLY
     Dates: start: 20200423

REACTIONS (11)
  - Haematochezia [Unknown]
  - Therapeutic product effect decreased [Unknown]
  - Drug level above therapeutic [Recovering/Resolving]
  - Off label use [Unknown]
  - Incorrect dose administered [Unknown]
  - Inappropriate schedule of product administration [Unknown]
  - COVID-19 [Unknown]
  - Condition aggravated [Recovered/Resolved]
  - Anal fistula [Unknown]
  - Cough [Not Recovered/Not Resolved]
  - Migraine [Recovered/Resolved]

NARRATIVE: CASE EVENT DATE: 20211111
